FAERS Safety Report 4527486-6 (Version None)
Quarter: 2004Q4

REPORT INFORMATION
  Report Type: 
  Country: None (occurrence: None)
  Receive Date: 20041130
  Receipt Date: 20040916
  Transmission Date: 20050328
  Serious: No
  Sender: FDA-Public Use
  Company Number: WAES 0409USA01490

PATIENT
  Sex: Female

DRUGS (6)
  1. ZETIA [Suspect]
     Indication: HYPERTENSION
     Dosage: 10 MG/ DAILY/ PO
     Route: 048
     Dates: start: 20040601
  2. CARDINE [Concomitant]
  3. CELEBREX [Concomitant]
  4. MYLANTA + MYLANTA DS [Concomitant]
  5. NEURONTIN [Concomitant]
  6. RELAFEN [Concomitant]

REACTIONS (4)
  - BLOOD TRIGLYCERIDES INCREASED [None]
  - EYE IRRITATION [None]
  - HEADACHE [None]
  - PRURITUS [None]
